FAERS Safety Report 5011146-1 (Version None)
Quarter: 2006Q2

REPORT INFORMATION
  Report Type: 
  Country: None (occurrence: None)
  Receive Date: 20060523
  Receipt Date: 20060510
  Transmission Date: 20061013
  Serious: Yes (Death)
  Sender: FDA-Public Use
  Company Number: 2006BH009837

PATIENT

DRUGS (2)
  1. MITOMYCIN [Suspect]
     Indication: SQUAMOUS CELL CARCINOMA
  2. FLUOROURACIL [Suspect]
     Indication: SQUAMOUS CELL CARCINOMA

REACTIONS (1)
  - NEUTROPENIC SEPSIS [None]
